FAERS Safety Report 8856687 (Version 1)
Quarter: 2012Q4

REPORT INFORMATION
  Report Type: Spontaneous
  Country: GB (occurrence: None)
  Receive Date: 20121019
  Receipt Date: 20121019
  Transmission Date: 20130627
  Serious: Yes (Other)
  Sender: FDA-Public Use
  Company Number: AXC-2012-000457

PATIENT
  Sex: Male

DRUGS (2)
  1. NITROGLYCERIN (NITROGLYCERIN) RECTAL OINTMENT [Suspect]
     Route: 061
     Dates: start: 201208
  2. LANSOPRAZOLE (LANSOPRAZOLE) [Concomitant]

REACTIONS (3)
  - Viral labyrinthitis [None]
  - Scab [None]
  - Dysstasia [None]
